FAERS Safety Report 7209401-X (Version None)
Quarter: 2010Q4

REPORT INFORMATION
  Report Type: 
  Country: None (occurrence: None)
  Receive Date: 20101222
  Receipt Date: 20101207
  Transmission Date: 20110411
  Serious: Yes (Death)
  Sender: FDA-Public Use
  Company Number: UTC-003416

PATIENT
  Age: 27 Year
  Sex: Female
  Weight: 47.6 kg

DRUGS (3)
  1. REMODULIN [Suspect]
     Dosage: 2347.2 UG/KG (1.63 UG/KG,1 IN 1 MIN), INTRAVENOUS
     Route: 042
     Dates: start: 20090413, end: 20101206
  2. REVATIO [Concomitant]
  3. TRACLEER [Concomitant]

REACTIONS (1)
  - DEATH [None]
